FAERS Safety Report 25881109 (Version 1)
Quarter: 2025Q4

REPORT INFORMATION
  Report Type: Spontaneous
  Country: EU (occurrence: EU)
  Receive Date: 20251004
  Receipt Date: 20251004
  Transmission Date: 20260117
  Serious: Yes (Hospitalization, Other)
  Sender: NOVARTIS
  Company Number: None

PATIENT
  Age: 77 Year
  Sex: Female

DRUGS (5)
  1. CARBAMAZEPINE [Suspect]
     Active Substance: CARBAMAZEPINE
     Indication: Glossopharyngeal neuralgia
     Dosage: 200 MG, Q24H (561A)
     Route: 048
     Dates: start: 20250709, end: 20250809
  2. PREGABALIN [Suspect]
     Active Substance: PREGABALIN
     Indication: Glossopharyngeal neuralgia
     Dosage: 25 MG (PAUTA VARIABLE, 3897A)
     Route: 048
     Dates: start: 20250703, end: 20250814
  3. DULOXETINE [Suspect]
     Active Substance: DULOXETINE
     Indication: Glossopharyngeal neuralgia
     Dosage: 30 MG, Q24H (7421A)
     Route: 048
     Dates: start: 20250723, end: 20250804
  4. DULOXETINE [Suspect]
     Active Substance: DULOXETINE
     Dosage: 60 MG, Q24H
     Route: 048
     Dates: start: 20250811, end: 20250813
  5. METAMIZOL [Suspect]
     Active Substance: METAMIZOLE SODIUM
     Indication: Glossopharyngeal neuralgia
     Dosage: 575 MG, Q8H ((111A))
     Route: 048
     Dates: start: 20250716, end: 20250808

REACTIONS (5)
  - Drug reaction with eosinophilia and systemic symptoms [Recovered/Resolved]
  - Drug reaction with eosinophilia and systemic symptoms [Recovered/Resolved]
  - Hypertransaminasaemia [Recovered/Resolved]
  - Eosinophilia [Recovered/Resolved]
  - Lymphocytosis [Recovered/Resolved]

NARRATIVE: CASE EVENT DATE: 20250803
